FAERS Safety Report 22309779 (Version 1)
Quarter: 2023Q2

REPORT INFORMATION
  Report Type: Spontaneous
  Country: US (occurrence: US)
  Receive Date: 20230511
  Receipt Date: 20230511
  Transmission Date: 20230721
  Serious: No
  Sender: FDA-Public Use
  Company Number: US-MYLANLABS-2023M1046071

PATIENT
  Sex: Female
  Weight: 52.154 kg

DRUGS (1)
  1. FENTANYL TRANSDERMAL SYSTEM [Suspect]
     Active Substance: FENTANYL
     Indication: Nerve injury
     Dosage: 50 MICROGRAM, QH (1 PATCH EVERY 72 HRS)
     Route: 062
     Dates: start: 2009

REACTIONS (9)
  - Abdominal pain [Unknown]
  - Chills [Unknown]
  - Hyperhidrosis [Unknown]
  - Pain [Unknown]
  - Palpitations [Unknown]
  - Blood pressure abnormal [Unknown]
  - Nasal congestion [Unknown]
  - Nausea [Unknown]
  - Therapeutic product effect decreased [Unknown]
